FAERS Safety Report 9886736 (Version 2)
Quarter: 2014Q2

REPORT INFORMATION
  Report Type: Spontaneous
  Country: DE (occurrence: DE)
  Receive Date: 20140210
  Receipt Date: 20140617
  Transmission Date: 20141212
  Serious: Yes (Death, Hospitalization)
  Sender: FDA-Public Use
  Company Number: DE-TEVA-461129GER

PATIENT
  Age: 80 Year
  Sex: Female
  Weight: 65 kg

DRUGS (14)
  1. METFORMIN [Suspect]
     Indication: TYPE 2 DIABETES MELLITUS
     Dosage: 1000 MILLIGRAM DAILY;
     Route: 048
     Dates: start: 2011, end: 201401
  2. ONGLYZA [Suspect]
     Indication: TYPE 2 DIABETES MELLITUS
     Dosage: 5 MILLIGRAM DAILY;
     Route: 048
     Dates: start: 201309, end: 201401
  3. MADOPAR [Concomitant]
     Indication: RESTLESSNESS
     Dosage: 62.5 MILLIGRAM DAILY;
     Route: 048
  4. MIRTAZAPIN [Concomitant]
     Indication: DEPRESSION
     Dosage: 30 MILLIGRAM DAILY;
     Route: 048
  5. ROPINIROL [Concomitant]
     Dosage: .5 MILLIGRAM DAILY;
     Route: 048
  6. GABAPENTIN [Concomitant]
     Dosage: 900 MILLIGRAM DAILY;
     Route: 048
  7. ATORVASTATIN [Concomitant]
     Indication: HYPERLIPIDAEMIA
     Dosage: 10 MILLIGRAM DAILY;
     Route: 048
  8. PANTOPRAZOL [Concomitant]
     Dosage: 40 MILLIGRAM DAILY;
     Route: 048
  9. NOVALGIN [Concomitant]
     Dosage: 2000 MILLIGRAM DAILY;
     Route: 048
  10. TILIDIN 100/8 MG [Concomitant]
     Dosage: 1-0-1
     Route: 048
  11. FOLSAEURE [Concomitant]
     Dosage: 5 MILLIGRAM DAILY;
     Route: 048
  12. MCP [Concomitant]
     Dosage: 90 GTT DAILY;
     Route: 048
  13. KALINOR-BRAUSETABLETTEN [Concomitant]
     Dosage: 1-0-0
     Route: 048
  14. ACTRAPHANE [Concomitant]
     Dosage: ACCORDING TO PLAN
     Route: 048

REACTIONS (1)
  - Pancreatitis acute [Fatal]
